FAERS Safety Report 4481180-9 (Version None)
Quarter: 2004Q4

REPORT INFORMATION
  Report Type: 
  Country: None (occurrence: None)
  Receive Date: 20041021
  Receipt Date: 20041015
  Transmission Date: 20050328
  Serious: Yes (Life-Threatening, Hospitalization)
  Sender: FDA-Public Use
  Company Number: US-MERCK-0410USA02407

PATIENT
  Age: 68 Year
  Sex: Female

DRUGS (6)
  1. VIOXX [Suspect]
     Indication: ARTHRITIS
     Route: 048
     Dates: start: 20000905, end: 20030101
  2. NEURONTIN [Concomitant]
     Route: 065
  3. NORVASC [Concomitant]
     Route: 065
  4. LASIX [Concomitant]
     Route: 065
  5. COUMADIN [Concomitant]
     Route: 065
  6. TICLOPIDINE HYDROCHLORIDE [Concomitant]
     Route: 065

REACTIONS (2)
  - CARDIAC DISORDER [None]
  - DRUG INEFFECTIVE [None]
